FAERS Safety Report 21292498 (Version 1)
Quarter: 2022Q3

REPORT INFORMATION
  Report Type: Spontaneous
  Country: CN (occurrence: CN)
  Receive Date: 20220905
  Receipt Date: 20220905
  Transmission Date: 20221027
  Serious: Yes (Other)
  Sender: FDA-Public Use
  Company Number: CN-AMGEN-CHNSP2022150473

PATIENT
  Age: 66 Year
  Sex: Male

DRUGS (3)
  1. XGEVA [Suspect]
     Active Substance: DENOSUMAB
     Indication: Metastases to bone
     Dosage: 120 MILLIGRAM, Q4WK
     Route: 065
  2. ENSARTINIB [Concomitant]
     Active Substance: ENSARTINIB
     Dosage: 225 MILLIGRAM, QID
  3. ENSARTINIB [Concomitant]
     Active Substance: ENSARTINIB
     Dosage: 125 MILLIGRAM, QID

REACTIONS (4)
  - Inflammatory myofibroblastic tumour [Unknown]
  - Rash pruritic [Recovering/Resolving]
  - Ageusia [Unknown]
  - Constipation [Unknown]
